FAERS Safety Report 5852990-8 (Version None)
Quarter: 2008Q3

REPORT INFORMATION
  Report Type: 
  Country: None (occurrence: None)
  Receive Date: 20080821
  Receipt Date: 20080813
  Transmission Date: 20090109
  Serious: Yes (Hospitalization)
  Sender: FDA-Public Use
  Company Number: JP-ROCHE-577908

PATIENT
  Age: 48 Year
  Sex: Female

DRUGS (2)
  1. REBETOL [Suspect]
     Dosage: REPORTED AS 'TAPERED AND DISCONTINUED'
     Route: 065
  2. PEG-INTRON [Suspect]
     Dosage: DOSE REDUCED
     Route: 065

REACTIONS (1)
  - EVANS SYNDROME [None]
